FAERS Safety Report 12947712 (Version 1)
Quarter: 2016Q4

REPORT INFORMATION
  Report Type: Report from Study
  Country: CA (occurrence: CA)
  Receive Date: 20161117
  Receipt Date: 20161117
  Transmission Date: 20170207
  Serious: Yes (Other)
  Sender: FDA-Public Use
  Company Number: CA-AMGEN-CANSL2016157817

PATIENT
  Age: 61 Year
  Sex: Female

DRUGS (13)
  1. IRON [Concomitant]
     Active Substance: IRON
  2. INVOKANA [Concomitant]
     Active Substance: CANAGLIFLOZIN
  3. AMLODIPINE [Concomitant]
     Active Substance: AMLODIPINE BESYLATE
  4. MAVIK [Concomitant]
     Active Substance: TRANDOLAPRIL
  5. REPATHA [Suspect]
     Active Substance: EVOLOCUMAB
     Indication: PRODUCT USED FOR UNKNOWN INDICATION
     Dosage: 140 MG/1.0ML, UNK
     Route: 065
  6. LODALIS [Concomitant]
     Active Substance: COLESEVELAM HYDROCHLORIDE
  7. PREGABALIN. [Concomitant]
     Active Substance: PREGABALIN
  8. JANUVIA [Concomitant]
     Active Substance: SITAGLIPTIN PHOSPHATE
  9. TERAZOSIN [Concomitant]
     Active Substance: TERAZOSIN\TERAZOSIN HYDROCHLORIDE
  10. BISOPROLOL [Concomitant]
     Active Substance: BISOPROLOL
  11. METFORMIN [Concomitant]
     Active Substance: METFORMIN HYDROCHLORIDE
  12. HYDROCHLOROTHIAZIDE. [Concomitant]
     Active Substance: HYDROCHLOROTHIAZIDE
  13. CELEBREX [Concomitant]
     Active Substance: CELECOXIB

REACTIONS (18)
  - Gastric disorder [Recovered/Resolved]
  - Muscle spasms [Unknown]
  - Dysstasia [Unknown]
  - Flatulence [Recovered/Resolved]
  - Myalgia [Not Recovered/Not Resolved]
  - Tendon pain [Not Recovered/Not Resolved]
  - Pain [Not Recovered/Not Resolved]
  - Muscular weakness [Unknown]
  - Musculoskeletal disorder [Unknown]
  - Nausea [Recovered/Resolved]
  - Weight increased [Unknown]
  - Arthropathy [Unknown]
  - Fungal infection [Recovered/Resolved]
  - Feeling abnormal [Unknown]
  - Sleep disorder [Unknown]
  - Pain in extremity [Unknown]
  - Nasopharyngitis [Recovered/Resolved]
  - Costochondritis [Unknown]

NARRATIVE: CASE EVENT DATE: 2014
